FAERS Safety Report 14031008 (Version 3)
Quarter: 2017Q4

REPORT INFORMATION
  Report Type: Report from Study
  Country: US (occurrence: US)
  Receive Date: 20171002
  Receipt Date: 20171229
  Transmission Date: 20180321
  Serious: Yes (Hospitalization)
  Sender: FDA-Public Use
  Company Number: US-BAYER-2017-159889

PATIENT
  Age: 24 Year
  Sex: Female

DRUGS (4)
  1. ADEMPAS [Suspect]
     Active Substance: RIOCIGUAT
     Indication: PULMONARY ARTERIAL HYPERTENSION
     Dosage: UNK
  2. ADEMPAS [Suspect]
     Active Substance: RIOCIGUAT
     Indication: PULMONARY ARTERIAL HYPERTENSION
     Dosage: 2.5 MG, TID
     Route: 048
     Dates: start: 20150818
  3. REMODULIN [Concomitant]
     Active Substance: TREPROSTINIL
     Dosage: REMODULIN CURRENT DOSE 20 NKM
  4. ADEMPAS [Suspect]
     Active Substance: RIOCIGUAT
     Indication: PULMONARY ARTERIAL HYPERTENSION
     Dosage: 2.5 MG, TID
     Route: 048

REACTIONS (5)
  - Hypoaesthesia [None]
  - Device related infection [Recovered/Resolved]
  - Hospitalisation [Unknown]
  - Device dislocation [Unknown]
  - Dyspnoea [None]

NARRATIVE: CASE EVENT DATE: 20170809
